FAERS Safety Report 5156975-9 (Version None)
Quarter: 2006Q4

REPORT INFORMATION
  Report Type: 
  Country: None (occurrence: None)
  Receive Date: 20061124
  Receipt Date: 20061120
  Transmission Date: 20070319
  Serious: Yes (Other)
  Sender: FDA-Public Use
  Company Number: FR-ROCHE-471931

PATIENT
  Age: 80 Year
  Sex: Male

DRUGS (6)
  1. NICARDIPINE HYDROCHLORIDE [Suspect]
     Indication: HYPERTENSION
     Route: 048
     Dates: start: 19910615
  2. AVODART [Suspect]
     Indication: DRUG USE FOR UNKNOWN INDICATION
     Route: 048
  3. COTAREG [Concomitant]
     Dates: start: 20020515
  4. SOTALOL HYDROCHLORIDE [Concomitant]
  5. RILMENIDINE [Concomitant]
  6. ASPIRIN [Concomitant]

REACTIONS (1)
  - PLATELET COUNT DECREASED [None]
